FAERS Safety Report 8792856 (Version 1)
Quarter: 2012Q4

REPORT INFORMATION
  Report Type: 
  Country: IE (occurrence: IE)
  Receive Date: 20120918
  Receipt Date: 20120918
  Transmission Date: 20130627
  Serious: Yes (Other)
  Sender: FDA-Public Use
  Company Number: IE-ELI_LILLY_AND_COMPANY-IE201209001693

PATIENT
  Sex: Male

DRUGS (9)
  1. FORSTEO [Suspect]
     Indication: OSTEOPOROSIS
     Dosage: 20 ug, unknown
     Route: 058
     Dates: start: 20120810, end: 20120906
  2. PARACETAMOL [Concomitant]
     Dosage: UNK
  3. CORDARONE [Concomitant]
     Dosage: UNK
  4. INSPRA [Concomitant]
     Dosage: UNK
  5. ATORVASTATIN [Concomitant]
     Dosage: UNK
  6. IXPRIM [Concomitant]
     Dosage: UNK
  7. RAMIPRIL [Concomitant]
     Dosage: UNK
  8. VERSATIS [Concomitant]
     Dosage: UNK
  9. WARFARIN [Concomitant]
     Dosage: UNK

REACTIONS (1)
  - Hepatic enzyme abnormal [Unknown]
